FAERS Safety Report 22616667 (Version 1)
Quarter: 2023Q2

REPORT INFORMATION
  Report Type: Spontaneous
  Country: IL (occurrence: IL)
  Receive Date: 20230619
  Receipt Date: 20230619
  Transmission Date: 20230722
  Serious: Yes (Other)
  Sender: FDA-Public Use
  Company Number: IL-BAYER-2023A083856

PATIENT
  Age: 24 Year
  Sex: Male

DRUGS (1)
  1. PRAZIQUANTEL [Suspect]
     Active Substance: PRAZIQUANTEL
     Indication: Schistosomiasis
     Dosage: DAILY DOSE 40 MG/KG
     Route: 048

REACTIONS (1)
  - Myopericarditis [None]
